FAERS Safety Report 8012142-2 (Version None)
Quarter: 2011Q4

REPORT INFORMATION
  Report Type: 
  Country: None (occurrence: None)
  Receive Date: 20111228
  Receipt Date: 20111222
  Transmission Date: 20120403
  Serious: Yes (Hospitalization)
  Sender: FDA-Public Use
  Company Number: US-GILEAD-2011-0043617

PATIENT
  Sex: Female

DRUGS (2)
  1. LETAIRIS [Suspect]
     Indication: AMYLOIDOSIS
  2. LETAIRIS [Suspect]
     Indication: PULMONARY HYPERTENSION
     Dates: start: 20110819

REACTIONS (2)
  - CARDIAC PACEMAKER INSERTION [None]
  - BLOOD POTASSIUM DECREASED [None]
